FAERS Safety Report 5074718-4 (Version None)
Quarter: 2006Q3

REPORT INFORMATION
  Report Type: 
  Country: None (occurrence: None)
  Receive Date: 20060807
  Receipt Date: 20060725
  Transmission Date: 20061208
  Serious: Yes (Hospitalization, Other)
  Sender: FDA-Public Use
  Company Number: 2006092291

PATIENT
  Age: 90 Year
  Sex: Female

DRUGS (2)
  1. MEDROL [Suspect]
     Indication: DRUG USE FOR UNKNOWN INDICATION
     Dosage: 4 MG (4 MG, 1 D), ORAL
     Route: 048
     Dates: start: 20030501
  2. SINTROM [Suspect]
     Indication: DRUG USE FOR UNKNOWN INDICATION
     Dosage: ORAL
     Route: 048
     Dates: start: 20030601, end: 20031010

REACTIONS (7)
  - DRUG INTERACTION [None]
  - EROSIVE DUODENITIS [None]
  - GASTROINTESTINAL HAEMORRHAGE [None]
  - HYPOKALAEMIA [None]
  - INTERNATIONAL NORMALISED RATIO INCREASED [None]
  - LOWER GASTROINTESTINAL HAEMORRHAGE [None]
  - UPPER GASTROINTESTINAL HAEMORRHAGE [None]
